FAERS Safety Report 18669207 (Version 2)
Quarter: 2021Q2

REPORT INFORMATION
  Report Type: Spontaneous
  Country: US (occurrence: US)
  Receive Date: 20201228
  Receipt Date: 20210427
  Transmission Date: 20210717
  Serious: Yes (Other)
  Sender: FDA-Public Use
  Company Number: US-GILEAD-2020-0509282

PATIENT
  Sex: Male
  Weight: 70.75 kg

DRUGS (15)
  1. ATORVASTATIN [Concomitant]
     Active Substance: ATORVASTATIN
  2. ATROVENT [Concomitant]
     Active Substance: IPRATROPIUM BROMIDE
  3. METOPROLOL. [Concomitant]
     Active Substance: METOPROLOL
  4. RETROVIR [Concomitant]
     Active Substance: ZIDOVUDINE
  5. HYDROCODONE [Concomitant]
     Active Substance: HYDROCODONE
  6. TRUVADA [Suspect]
     Active Substance: EMTRICITABINE\TENOFOVIR DISOPROXIL FUMARATE
     Dosage: UNK
     Route: 048
     Dates: start: 20170718, end: 201903
  7. ALBUTEROL [SALBUTAMOL] [Concomitant]
     Active Substance: ALBUTEROL
  8. VITAMIN B12 [Concomitant]
     Active Substance: CYANOCOBALAMIN
  9. VIRAMUNE [Concomitant]
     Active Substance: NEVIRAPINE
  10. KEPPRA [Concomitant]
     Active Substance: LEVETIRACETAM
  11. TAMSULOSIN [Concomitant]
     Active Substance: TAMSULOSIN
  12. TRUVADA [Suspect]
     Active Substance: EMTRICITABINE\TENOFOVIR DISOPROXIL FUMARATE
     Indication: HIV INFECTION
     Dosage: UNK
     Route: 048
     Dates: start: 2004
  13. CARBAMAZEPINE. [Concomitant]
     Active Substance: CARBAMAZEPINE
  14. PROSCAR [Concomitant]
     Active Substance: FINASTERIDE
  15. TRIUMEQ [Concomitant]
     Active Substance: ABACAVIR SULFATE\DOLUTEGRAVIR SODIUM\LAMIVUDINE

REACTIONS (8)
  - Emotional distress [Not Recovered/Not Resolved]
  - Bone density decreased [Unknown]
  - Osteoporosis [Not Recovered/Not Resolved]
  - Anhedonia [Not Recovered/Not Resolved]
  - Pain [Not Recovered/Not Resolved]
  - Femur fracture [Unknown]
  - Anxiety [Not Recovered/Not Resolved]
  - Depression [Not Recovered/Not Resolved]

NARRATIVE: CASE EVENT DATE: 2010
